FAERS Safety Report 7054566-6 (Version None)
Quarter: 2010Q4

REPORT INFORMATION
  Report Type: 
  Country: None (occurrence: None)
  Receive Date: 20101020
  Receipt Date: 20101007
  Transmission Date: 20110411
  Serious: Yes (Other)
  Sender: FDA-Public Use
  Company Number: CA-ELI_LILLY_AND_COMPANY-CA201010001757

PATIENT
  Sex: Female

DRUGS (1)
  1. ZYPREXA [Suspect]
     Dosage: UNK, UNKNOWN
     Route: 065
     Dates: start: 20070201

REACTIONS (6)
  - ASTHENIA [None]
  - DIABETES MELLITUS [None]
  - FATIGUE [None]
  - MYOCARDIAL INFARCTION [None]
  - POLLAKIURIA [None]
  - RENAL FAILURE [None]
